FAERS Safety Report 4579636-3 (Version None)
Quarter: 2005Q1

REPORT INFORMATION
  Report Type: 
  Country: None (occurrence: None)
  Receive Date: 20050210
  Receipt Date: 20050128
  Transmission Date: 20050727
  Serious: Yes (Hospitalization)
  Sender: FDA-Public Use
  Company Number: 02100-JPN-05-0033

PATIENT
  Age: 50 Year
  Sex: Male

DRUGS (7)
  1. CILOSTAZOL [Suspect]
     Indication: MYOCARDIAL INFARCTION
     Dosage: 2 DF, ORAL
     Route: 048
     Dates: start: 20020626, end: 20021027
  2. ASPIRIN/DIALUMINATE [Suspect]
     Indication: MYOCARDIAL INFARCTION
     Dosage: 81 MG, ORAL
     Route: 048
     Dates: start: 20020626, end: 20021027
  3. ISOSORBIDE DINITRATE [Concomitant]
  4. AZULENE SULFONATE SODIUM/L-GLUTAMINE [Concomitant]
  5. NICORANDIL [Concomitant]
  6. FAMOTIDINE [Concomitant]
  7. BIFIDOBACTERIUM [Concomitant]

REACTIONS (8)
  - DIVERTICULUM INTESTINAL HAEMORRHAGIC [None]
  - HAEMATOCRIT DECREASED [None]
  - HAEMOGLOBIN DECREASED [None]
  - LOSS OF CONSCIOUSNESS [None]
  - LOWER GASTROINTESTINAL HAEMORRHAGE [None]
  - RED BLOOD CELL COUNT DECREASED [None]
  - SHOCK HAEMORRHAGIC [None]
  - WHITE BLOOD CELL COUNT INCREASED [None]
